FAERS Safety Report 7297492-X (Version None)
Quarter: 2011Q1

REPORT INFORMATION
  Report Type: 
  Country: None (occurrence: None)
  Receive Date: 20110204
  Receipt Date: 20110201
  Transmission Date: 20110831
  Serious: Yes (Life-Threatening, Hospitalization, Other)
  Sender: FDA-Public Use
  Company Number: 2011SP004632

PATIENT
  Age: 47 Year
  Sex: Female
  Weight: 58 kg

DRUGS (2)
  1. REMERON [Suspect]
     Indication: PRODUCT USED FOR UNKNOWN INDICATION
     Dosage: QD;PO
     Route: 048
  2. SYNTHROID [Concomitant]

REACTIONS (4)
  - TYPE 1 DIABETES MELLITUS [None]
  - NOCTURNAL DYSPNOEA [None]
  - HEART RATE DECREASED [None]
  - CHOKING [None]
